FAERS Safety Report 5527529-7 (Version None)
Quarter: 2007Q4

REPORT INFORMATION
  Report Type: 
  Country: None (occurrence: None)
  Receive Date: 20071128
  Receipt Date: 20071120
  Transmission Date: 20080405
  Serious: Yes (Other)
  Sender: FDA-Public Use
  Company Number: GB-WYE-G00650107

PATIENT
  Age: 48 Year
  Sex: Female
  Weight: 82 kg

DRUGS (4)
  1. VENLAFAXIINE HCL [Suspect]
     Indication: HOT FLUSH
     Dosage: 37.5 MG UNKNOWN FREQUENCY
     Route: 048
     Dates: start: 20071019, end: 20071022
  2. ATORVASTATIN CALCIUM [Concomitant]
     Indication: PROPHYLAXIS
     Dosage: UNKNOWN
     Route: 048
  3. LOSARTAN POTASSIUM [Concomitant]
     Indication: HYPERTENSION
     Dosage: 150 MG UNKNOWN FREQUENCY
     Route: 048
  4. ASPIRIN [Concomitant]
     Indication: PROPHYLAXIS
     Dosage: 75 MG UNKNOWN FREQUENCY
     Route: 048

REACTIONS (4)
  - DISORIENTATION [None]
  - HEART RATE INCREASED [None]
  - HEART RATE IRREGULAR [None]
  - SOMNOLENCE [None]
